FAERS Safety Report 16782329 (Version 1)
Quarter: 2019Q3

REPORT INFORMATION
  Report Type: Spontaneous
  Country: US (occurrence: US)
  Receive Date: 20190906
  Receipt Date: 20190906
  Transmission Date: 20191005
  Serious: No
  Sender: FDA-Public Use
  Company Number: US-TEVA-2019-US-1103814

PATIENT
  Sex: Male

DRUGS (1)
  1. TESTOSTERONE TEVA [Suspect]
     Active Substance: TESTOSTERONE
     Indication: BLOOD TESTOSTERONE DECREASED

REACTIONS (3)
  - Myalgia [Unknown]
  - Circumstance or information capable of leading to medication error [Unknown]
  - Product dispensing error [Unknown]
